FAERS Safety Report 24168424 (Version 1)
Quarter: 2024Q3

REPORT INFORMATION
  Report Type: Report from Study
  Country: RU (occurrence: None)
  Receive Date: 20240802
  Receipt Date: 20240802
  Transmission Date: 20241017
  Serious: Yes (Other)
  Sender: ASTRAZENECA
  Company Number: 2024A172386

PATIENT
  Age: 142 Month
  Sex: Male
  Weight: 46 kg

DRUGS (2)
  1. SELUMETINIB [Suspect]
     Active Substance: SELUMETINIB
     Indication: Neurofibromatosis
     Route: 048
     Dates: start: 20230313
  2. SELUMETINIB [Suspect]
     Active Substance: SELUMETINIB
     Indication: Neurofibroma
     Route: 048
     Dates: start: 20230313

REACTIONS (3)
  - Gastrointestinal polyp [Unknown]
  - Abdominal pain [Not Recovered/Not Resolved]
  - Gastrooesophageal reflux disease [Unknown]

NARRATIVE: CASE EVENT DATE: 20230601
